FAERS Safety Report 6398656-X (Version None)
Quarter: 2009Q4

REPORT INFORMATION
  Report Type: 
  Country: None (occurrence: None)
  Receive Date: 20091013
  Receipt Date: 20091006
  Transmission Date: 20100525
  Serious: Yes (Hospitalization, Disabling)
  Sender: FDA-Public Use
  Company Number: US-MERCK-0910USA00698

PATIENT
  Age: 44 Year
  Sex: Female

DRUGS (8)
  1. ISENTRESS [Suspect]
     Indication: HIV INFECTION
     Route: 048
     Dates: start: 20071130
  2. REYATAZ [Concomitant]
     Route: 065
  3. NORVIR [Concomitant]
     Route: 065
  4. LOPID [Concomitant]
     Route: 065
  5. METOPROLOL [Concomitant]
     Route: 065
  6. PERCOCET [Concomitant]
     Route: 065
  7. ASPIRIN [Concomitant]
     Route: 065
  8. ENALAPRIL MALEATE [Concomitant]
     Route: 065

REACTIONS (1)
  - PANCREATITIS [None]
